FAERS Safety Report 16642254 (Version 1)
Quarter: 2019Q3

REPORT INFORMATION
  Report Type: Report from Study
  Country: IT (occurrence: IT)
  Receive Date: 20190729
  Receipt Date: 20190729
  Transmission Date: 20191004
  Serious: Yes (Other)
  Sender: FDA-Public Use
  Company Number: IT-JNJFOC-20190728589

PATIENT
  Age: 81 Year
  Sex: Male

DRUGS (1)
  1. IMBRUVICA [Suspect]
     Active Substance: IBRUTINIB
     Indication: CHRONIC LYMPHOCYTIC LEUKAEMIA
     Route: 048

REACTIONS (5)
  - Contusion [Unknown]
  - Bronchitis [Unknown]
  - Thrombocytopenia [Unknown]
  - Swelling [Unknown]
  - Haemoglobin decreased [Unknown]
